FAERS Safety Report 9326764 (Version 3)
Quarter: 2015Q3

REPORT INFORMATION
  Report Type: Spontaneous
  Country: US (occurrence: US)
  Receive Date: 20130604
  Receipt Date: 20150922
  Transmission Date: 20151125
  Serious: Yes (Hospitalization)
  Sender: FDA-Public Use
  Company Number: US-AMGEN-USASP2013033431

PATIENT
  Age: 65 Year
  Sex: Male

DRUGS (5)
  1. DOXAZOSIN [Concomitant]
     Active Substance: DOXAZOSIN\DOXAZOSIN MESYLATE
     Dosage: 1 G, UNK
  2. METOPROLOL [Concomitant]
     Active Substance: METOPROLOL
     Dosage: 100 UNK, UNK
  3. FINASTERIDE. [Concomitant]
     Active Substance: FINASTERIDE
     Dosage: 5 G, UNK
  4. ENBREL [Suspect]
     Active Substance: ETANERCEPT
     Indication: ANKYLOSING SPONDYLITIS
     Dosage: 50 MG, QWK
     Route: 058
     Dates: start: 20050101
  5. ASA [Concomitant]
     Active Substance: ASPIRIN
     Dosage: 375 UNK, UNK

REACTIONS (8)
  - Nasopharyngitis [Unknown]
  - Pneumonia [Unknown]
  - Upper respiratory tract infection [Unknown]
  - Joint swelling [Recovered/Resolved]
  - Arthralgia [Not Recovered/Not Resolved]
  - Joint effusion [Unknown]
  - Neck pain [Unknown]
  - Musculoskeletal pain [Unknown]

NARRATIVE: CASE EVENT DATE: 2010
